FAERS Safety Report 9767846 (Version 2)
Quarter: 2013Q4

REPORT INFORMATION
  Report Type: Spontaneous
  Country: IT (occurrence: IT)
  Receive Date: 20131217
  Receipt Date: 20131217
  Transmission Date: 20140711
  Serious: Yes (Death)
  Sender: FDA-Public Use
  Company Number: IT-TEVA-447161ISR

PATIENT
  Age: 79 Year
  Sex: Female

DRUGS (5)
  1. TICLOPIDINE HYDROCHLORIDE [Suspect]
     Indication: THROMBOSIS PROPHYLAXIS
     Dosage: 500 MILLIGRAM DAILY;
     Route: 048
     Dates: start: 20120101, end: 20131111
  2. EUTIROX - 75 MICROGRAMMI COMPRESSE [Concomitant]
     Indication: HYPOTHYROIDISM
     Dates: start: 20120101, end: 20131111
  3. DILATREND - 25 MG COMPRESSE [Concomitant]
     Indication: HYPERTENSION
     Dosage: 180 MILLIGRAM DAILY;
     Dates: start: 20120101, end: 20131111
  4. APROVEL [Concomitant]
     Indication: HYPERTENSION
     Dates: start: 20120101, end: 20131111
  5. TRIATEC - 10 MG COMPRESSE [Concomitant]
     Indication: HYPERTENSION
     Dates: start: 20120101, end: 20131111

REACTIONS (2)
  - Cerebral haemorrhage [Fatal]
  - Cardio-respiratory arrest [Fatal]
